FAERS Safety Report 5481533-6 (Version None)
Quarter: 2007Q4

REPORT INFORMATION
  Report Type: 
  Country: None (occurrence: None)
  Receive Date: 20071010
  Receipt Date: 20071001
  Transmission Date: 20080405
  Serious: Yes (Other)
  Sender: FDA-Public Use
  Company Number: GB-AMGEN-US229867

PATIENT
  Sex: Female
  Weight: 51.7 kg

DRUGS (6)
  1. ENBREL [Suspect]
     Indication: DRUG USE FOR UNKNOWN INDICATION
     Route: 058
     Dates: start: 20000501, end: 20070101
  2. ENBREL [Suspect]
     Route: 058
     Dates: start: 20070710
  3. THYROXIN [Concomitant]
     Dosage: 25 MICROGRAM, ONCE DAILY
     Route: 048
  4. LANSOPRAZOLE [Concomitant]
     Route: 048
  5. AMLODIPINE [Concomitant]
     Route: 048
  6. MELOXICAM [Concomitant]
     Route: 048

REACTIONS (1)
  - NEUTROPENIA [None]
